FAERS Safety Report 10138780 (Version 1)
Quarter: 2014Q2

REPORT INFORMATION
  Report Type: Spontaneous
  Country: NL (occurrence: NL)
  Receive Date: 20140429
  Receipt Date: 20140429
  Transmission Date: 20141212
  Serious: Yes (Hospitalization)
  Sender: FDA-Public Use
  Company Number: NL-AMGEN INC.-NLDSP2012085621

PATIENT
  Age: 60 Year
  Sex: Female

DRUGS (3)
  1. XGEVA [Suspect]
     Indication: METASTASES TO BONE
     Dosage: 1.7 ML, Q4WK
     Route: 058
     Dates: start: 20120412, end: 20120925
  2. XGEVA [Suspect]
     Indication: PROPHYLAXIS
  3. NEULASTA [Suspect]
     Indication: PROPHYLAXIS
     Dosage: 6 MG, Q4WK
     Route: 058
     Dates: start: 20120830, end: 20120927

REACTIONS (1)
  - Investigation [Unknown]
